FAERS Safety Report 10420697 (Version 1)
Quarter: 2014Q3

REPORT INFORMATION
  Report Type: Spontaneous
  Country: US (occurrence: None)
  Receive Date: 20140708
  Receipt Date: 20140708
  Transmission Date: 20150326
  Serious: Yes (Other)
  Sender: FDA-Public Use
  Company Number: 1193362

PATIENT
  Age: 74 Year
  Sex: Female
  Weight: 71.67 kg

DRUGS (3)
  1. NIX [Suspect]
     Active Substance: PERMETHRIN
     Indication: LICE INFESTATION
     Dosage: TOPICAL APPLICATION X 2
     Route: 061
     Dates: start: 20130515, end: 20130525
  2. FOSAMAX [Concomitant]
     Active Substance: ALENDRONATE SODIUM
  3. LEVOTHYROXINE [Concomitant]
     Active Substance: LEVOTHYROXINE

REACTIONS (1)
  - Skin ulcer [None]

NARRATIVE: CASE EVENT DATE: 201306
